FAERS Safety Report 5313945-5 (Version None)
Quarter: 2007Q2

REPORT INFORMATION
  Report Type: 
  Country: None (occurrence: None)
  Receive Date: 20070501
  Receipt Date: 20070420
  Transmission Date: 20071010
  Serious: Yes (Hospitalization)
  Sender: FDA-Public Use
  Company Number: DE-PFIZER INC-2007019535

PATIENT
  Sex: Female
  Weight: 87 kg

DRUGS (3)
  1. CELEBREX [Suspect]
     Indication: RHEUMATOID ARTHRITIS
     Dates: start: 20060905, end: 20070305
  2. CELEBREX [Suspect]
     Indication: OSTEOARTHRITIS
  3. RISEDRONATE SODIUM [Concomitant]
     Route: 048

REACTIONS (1)
  - PERIPHERAL EMBOLISM [None]
